FAERS Safety Report 15565774 (Version 1)
Quarter: 2018Q4

REPORT INFORMATION
  Report Type: Spontaneous
  Country: US (occurrence: US)
  Receive Date: 20181030
  Receipt Date: 20181030
  Transmission Date: 20190205
  Serious: Yes (Life-Threatening, Hospitalization)
  Sender: FDA-Public Use
  Company Number: US-IBIGEN-2018.05060

PATIENT
  Age: 66 Year
  Sex: Male

DRUGS (3)
  1. AMPICILLIN, CLAVULANIC ACID [Concomitant]
     Indication: APPENDICITIS
  2. UNK [Suspect]
     Active Substance: UNSPECIFIED INGREDIENT
     Indication: APPENDICITIS
     Dosage: ()
  3. UNK [Suspect]
     Active Substance: UNSPECIFIED INGREDIENT
     Indication: APPENDICITIS
     Dosage: TREATED EMPIRICALLY WITH PIPERACILLIN/TAZOBACTAM ON ADMISSION ()

REACTIONS (3)
  - Haemolytic anaemia [Recovering/Resolving]
  - Respiratory failure [Unknown]
  - Acute kidney injury [Recovering/Resolving]
